FAERS Safety Report 18592002 (Version 1)
Quarter: 2020Q4

REPORT INFORMATION
  Report Type: Spontaneous
  Country: GB (occurrence: GB)
  Receive Date: 20201208
  Receipt Date: 20201208
  Transmission Date: 20210114
  Serious: Yes (Disabling, Other)
  Sender: FDA-Public Use
  Company Number: GB-VERTEX PHARMACEUTICALS-2020-023923

PATIENT
  Age: 27 Year
  Sex: Female
  Weight: 60 kg

DRUGS (13)
  1. KAFTRIO [Suspect]
     Active Substance: ELEXACAFTOR\IVACAFTOR\TEZACAFTOR
     Indication: CYSTIC FIBROSIS
     Dosage: 2 TABS (75 MG IVACAFTOR/ 50 MG TEZACAFTOR/ 100 MG ELEXACAFTOR) AM
     Route: 048
     Dates: start: 20201009
  2. OMEPRAZOLE. [Concomitant]
     Active Substance: OMEPRAZOLE
     Dosage: 20MG, IN THE MORNING
  3. COLISTIMETHATE [COLISTIMETHATE SODIUM] [Concomitant]
     Active Substance: COLISTIMETHATE SODIUM
     Dosage: 4000000 INTERNATIONAL UNIT, QD
     Route: 048
  4. FOSTAIR [Concomitant]
     Active Substance: BECLOMETHASONE\FORMOTEROL
     Dosage: 4 DOSAGE FORM, QD
     Route: 055
  5. CIPROFLOXACIN HYDROCHLORIDE. [Concomitant]
     Active Substance: CIPROFLOXACIN HYDROCHLORIDE
     Dosage: 1500 MG, QD
     Route: 048
  6. DORNASE ALFA. [Concomitant]
     Active Substance: DORNASE ALFA
     Dosage: 2.5 MG, QD
     Route: 045
  7. KALYDECO [Suspect]
     Active Substance: IVACAFTOR
     Dosage: REDUCED DOSAGE
     Route: 048
  8. SALBUTAMOL [Concomitant]
     Active Substance: ALBUTEROL
     Dosage: 10 MG, QD
     Route: 045
  9. SODIUM CHLORIDE. [Concomitant]
     Active Substance: SODIUM CHLORIDE
     Dosage: 4 MILLILITER, QD
  10. KALYDECO [Suspect]
     Active Substance: IVACAFTOR
     Indication: CYSTIC FIBROSIS
     Dosage: 150 MILLIGRAM, IN THE EVENING
     Route: 048
     Dates: start: 20201009
  11. KAFTRIO [Suspect]
     Active Substance: ELEXACAFTOR\IVACAFTOR\TEZACAFTOR
     Dosage: REDUCED DOSAGE
     Route: 048
  12. MACROGOL [Concomitant]
     Active Substance: POLYETHYLENE GLYCOLS
     Dosage: 2 DOSAGE FORM, PRN
     Route: 048
  13. CREON [Concomitant]
     Active Substance: PANCRELIPASE AMYLASE\PANCRELIPASE LIPASE\PANCRELIPASE PROTEASE
     Dosage: 25,000 VARIABLE DOSE WITH MEALS AND SNACKS

REACTIONS (6)
  - Self-injurious ideation [Unknown]
  - Personality change [Unknown]
  - Menorrhagia [Unknown]
  - Suicidal ideation [Unknown]
  - Hallucination, auditory [Unknown]
  - Psychotic disorder [Not Recovered/Not Resolved]

NARRATIVE: CASE EVENT DATE: 20201009
